FAERS Safety Report 16227348 (Version 3)
Quarter: 2019Q2

REPORT INFORMATION
  Report Type: Report from Study
  Country: JP (occurrence: JP)
  Receive Date: 20190423
  Receipt Date: 20190626
  Transmission Date: 20190711
  Serious: Yes (Death)
  Sender: FDA-Public Use
  Company Number: JP-ACTELION-A-CH2019-189291

PATIENT
  Age: 61 Year
  Sex: Female

DRUGS (10)
  1. ASPIRIN. [Concomitant]
     Active Substance: ASPIRIN
  2. ALLOPURINOL. [Concomitant]
     Active Substance: ALLOPURINOL
  3. SAMSCA [Concomitant]
     Active Substance: TOLVAPTAN
  4. OXYGEN. [Concomitant]
     Active Substance: OXYGEN
  5. FUROSEMIDE. [Concomitant]
     Active Substance: FUROSEMIDE
  6. WARFARIN [Concomitant]
     Active Substance: WARFARIN
  7. PARIET [Concomitant]
     Active Substance: RABEPRAZOLE SODIUM
  8. SPIRONOLACTON [Concomitant]
     Active Substance: SPIRONOLACTONE
  9. CARELOAD [Concomitant]
     Active Substance: BERAPROST SODIUM
  10. OPSUMIT [Suspect]
     Active Substance: MACITENTAN
     Indication: PULMONARY ARTERIAL HYPERTENSION
     Dosage: 10 MG, QD
     Route: 048
     Dates: start: 20170819, end: 20180710

REACTIONS (1)
  - Death [Fatal]

NARRATIVE: CASE EVENT DATE: 20180730
